FAERS Safety Report 10085248 (Version 1)
Quarter: 2014Q2

REPORT INFORMATION
  Report Type: Spontaneous
  Country: IT (occurrence: IT)
  Receive Date: 20140417
  Receipt Date: 20140417
  Transmission Date: 20141212
  Serious: Yes (Other)
  Sender: FDA-Public Use
  Company Number: PHHY2014IT044312

PATIENT
  Sex: Female

DRUGS (1)
  1. DOCETAXEL [Suspect]
     Indication: BREAST CANCER
     Dosage: 80 MG, UNK
     Route: 042
     Dates: start: 20140225, end: 20140320

REACTIONS (4)
  - Confusional state [Recovered/Resolved]
  - Deafness [Recovered/Resolved]
  - Tinnitus [Recovered/Resolved]
  - Rash [Recovered/Resolved]
